FAERS Safety Report 6043359-4 (Version None)
Quarter: 2009Q1

REPORT INFORMATION
  Report Type: 
  Country: None (occurrence: None)
  Receive Date: 20090115
  Receipt Date: 20090106
  Transmission Date: 20090719
  Serious: Yes (Disabling)
  Sender: FDA-Public Use
  Company Number: IPS_01427_2009

PATIENT
  Age: 71 Year
  Sex: Male

DRUGS (1)
  1. APOKYN [Suspect]
     Indication: PARKINSON'S DISEASE
     Dosage: ().1 ML BID SUBCUTANEOUS)
     Route: 058
     Dates: start: 20090102, end: 20090103

REACTIONS (3)
  - ABASIA [None]
  - MUSCLE RIGIDITY [None]
  - TREMOR [None]
